FAERS Safety Report 5662496-7 (Version None)
Quarter: 2008Q1

REPORT INFORMATION
  Report Type: 
  Country: None (occurrence: None)
  Receive Date: 20080213
  Receipt Date: 20080116
  Transmission Date: 20080703
  Serious: Yes (Hospitalization)
  Sender: FDA-Public Use
  Company Number: PHEH2008US00741

PATIENT
  Age: 69 Year
  Sex: Female
  Weight: 55.8 kg

DRUGS (5)
  1. RECLAST [Suspect]
     Indication: OSTEOPOROSIS
     Dosage: 5 MG IV Q12 MONTHS, INTRAVENOUS
     Route: 042
     Dates: start: 20071205
  2. PREGABALIN (PREGABALIN) [Concomitant]
  3. SYNTHROID [Concomitant]
  4. PAROXETINE HCL [Concomitant]
  5. TRAMADOL HCL [Concomitant]

REACTIONS (3)
  - ARTHRALGIA [None]
  - MYALGIA [None]
  - PYREXIA [None]
